FAERS Safety Report 9098862 (Version 2)
Quarter: 2013Q1

REPORT INFORMATION
  Report Type: Spontaneous
  Country: US (occurrence: US)
  Receive Date: 20130213
  Receipt Date: 20130313
  Transmission Date: 20140127
  Serious: No
  Sender: FDA-Public Use
  Company Number: US-JNJFOC-20130117443

PATIENT
  Age: 38 None
  Sex: Male
  Weight: 79.38 kg

DRUGS (10)
  1. DURAGESIC [Suspect]
     Indication: INTERVERTEBRAL DISC PROTRUSION
     Route: 062
     Dates: start: 20121114, end: 20130122
  2. WATSON FENTANYL TRANSDERMAL SYSTEM [Suspect]
     Indication: PRODUCT USED FOR UNKNOWN INDICATION
     Route: 062
     Dates: start: 201211
  3. UNSPECIFIED NARCOTICS [Suspect]
     Indication: PAIN
     Route: 065
     Dates: start: 20130125
  4. ALBUTEROL [Concomitant]
     Indication: ASTHMA
     Route: 065
     Dates: start: 201202
  5. TRAZODON [Concomitant]
     Indication: SLEEP DISORDER
     Dosage: 100MG X 3 TABLETS
     Route: 048
     Dates: start: 201005
  6. TIZANIDINE [Concomitant]
     Indication: MUSCLE RELAXANT THERAPY
     Route: 048
     Dates: start: 201205
  7. OMEPRAZOLE [Concomitant]
     Indication: GASTROOESOPHAGEAL REFLUX DISEASE
     Route: 048
     Dates: start: 2000
  8. VALERIAN ROOT [Concomitant]
     Indication: SLEEP DISORDER
     Route: 065
     Dates: start: 2012
  9. MELATONIN [Concomitant]
     Indication: SLEEP DISORDER
     Route: 065
     Dates: start: 2012
  10. DULERA [Concomitant]
     Indication: ASTHMA
     Route: 065
     Dates: start: 201202

REACTIONS (12)
  - Abdominal pain [Recovering/Resolving]
  - Withdrawal syndrome [Not Recovered/Not Resolved]
  - Dyspnoea [Recovering/Resolving]
  - Inappropriate schedule of drug administration [Recovered/Resolved]
  - Product quality issue [Recovered/Resolved]
  - Drug ineffective [Recovered/Resolved]
  - Anxiety [Recovering/Resolving]
  - Pain [Recovering/Resolving]
  - Headache [Recovering/Resolving]
  - Fatigue [Recovering/Resolving]
  - Fatigue [Recovering/Resolving]
  - Depression [Recovering/Resolving]
